FAERS Safety Report 22615242 (Version 2)
Quarter: 2024Q3

REPORT INFORMATION
  Report Type: Report from Study
  Country: US (occurrence: US)
  Receive Date: 20230619
  Receipt Date: 20240925
  Transmission Date: 20241017
  Serious: Yes (Hospitalization)
  Sender: NOVARTIS
  Company Number: US-002147023-NVSC2023US137327

PATIENT
  Sex: Female

DRUGS (1)
  1. ENTRESTO [Suspect]
     Active Substance: SACUBITRIL\VALSARTAN
     Indication: Product used for unknown indication
     Dosage: 24 MG OF SACUBITRIL AND 26 MG OF VALSARTAN, BID
     Route: 048
     Dates: start: 20220926

REACTIONS (2)
  - Hand fracture [Unknown]
  - Condition aggravated [Unknown]
